FAERS Safety Report 14061129 (Version 4)
Quarter: 2018Q1

REPORT INFORMATION
  Report Type: Report from Study
  Country: IT (occurrence: IT)
  Receive Date: 20171008
  Receipt Date: 20180201
  Transmission Date: 20180508
  Serious: Yes (Hospitalization, Other)
  Sender: FDA-Public Use
  Company Number: IT-MYLANLABS-2017M1061826

PATIENT
  Age: 51 Year
  Sex: Female

DRUGS (2)
  1. PAROXETINE. [Suspect]
     Active Substance: PAROXETINE
     Indication: INTENTIONAL SELF-INJURY
     Dosage: 280 MG, TOTAL (14-18 DF)
     Route: 048
     Dates: start: 20170328, end: 20170328
  2. DELORAZEPAM [Suspect]
     Active Substance: DELORAZEPAM
     Indication: INTENTIONAL SELF-INJURY
     Dosage: 10 ML, TOTAL (1/2 OR 2/3 VIAL)
     Route: 048
     Dates: start: 20170328, end: 20170328

REACTIONS (5)
  - Tremor [Unknown]
  - Intentional overdose [Unknown]
  - Intentional self-injury [Unknown]
  - Alcohol abuse [Unknown]
  - Sopor [Unknown]

NARRATIVE: CASE EVENT DATE: 20170328
